FAERS Safety Report 23283998 (Version 1)
Quarter: 2023Q4

REPORT INFORMATION
  Report Type: Spontaneous
  Country: DE (occurrence: DE)
  Receive Date: 20231211
  Receipt Date: 20231211
  Transmission Date: 20240110
  Serious: Yes (Congenital Anomaly)
  Sender: FDA-Public Use
  Company Number: DE-EMBRYOTOX-202205155

PATIENT
  Age: 1 Day
  Sex: Female
  Weight: 3.08 kg

DRUGS (9)
  1. NATALIZUMAB [Suspect]
     Active Substance: NATALIZUMAB
     Indication: Multiple sclerosis
     Dosage: 300 [MG/D (ALLE 6 WK) ]/ 300 MG IN GW 4.1 AND IN GW 10.1, THEN CHANGE TO OMALIZUMAB
     Route: 064
     Dates: start: 20220321, end: 20220531
  2. PREDNISOLONE [Suspect]
     Active Substance: PREDNISOLONE
     Indication: Urticarial vasculitis
     Dosage: 15 [MG/D (BIS 5) ]/ 5-15 MG/D, 5 MG/D IN GW 4.2
     Route: 064
  3. CETIRIZINE [Concomitant]
     Active Substance: CETIRIZINE HYDROCHLORIDE
     Indication: Urticarial vasculitis
     Dosage: 10 [MG/D ]/ STOPPED AT THE BEGINNING OF 04/22
     Route: 064
     Dates: end: 202204
  4. Estrifam [Concomitant]
     Indication: Assisted fertilisation
     Dosage: 4 [MG/D (2X2) ]/ 4 MG/D, UNKNOWN UNTIL WHEN, PLANNED UNTIL GW 12
     Route: 064
     Dates: start: 20220321, end: 20220503
  5. LEVOTHYROXINE SODIUM [Concomitant]
     Active Substance: LEVOTHYROXINE SODIUM
     Indication: Hypothyroidism
     Dosage: 75 [?G/D ]
     Route: 064
     Dates: start: 20220321, end: 20221221
  6. LORATADINE [Concomitant]
     Active Substance: LORATADINE
     Indication: Urticarial vasculitis
     Dosage: 30 [MG/D ]/ NOT KNOWN UNTIL WHEN, 40 MG/D
     Route: 064
     Dates: start: 20220321, end: 20220420
  7. OMALIZUMAB [Concomitant]
     Active Substance: OMALIZUMAB
     Indication: Urticarial vasculitis
     Dosage: 300 [MG/D (ALLE 4 WK) ]/ STARTING FROM GW 10, EVERY 4 WEEKS, NO USE IN THIRD TRIMESTER
     Route: 064
  8. PROGESTERONE [Concomitant]
     Active Substance: PROGESTERONE
     Indication: Assisted fertilisation
     Dosage: 800 [MG/D ]/ 800 MG/D; UNKNOWN UNTIL WHEN, PLANNED UNTIL GW 12
     Route: 064
     Dates: start: 20220321, end: 20220503
  9. VITAMIN D NOS [Concomitant]
     Active Substance: VITAMIN D NOS
     Indication: Vitamin D deficiency
     Dosage: 1000 [IE/D ]/ UNKNOWN UNTIL WHEN
     Route: 064
     Dates: start: 20220321, end: 20220503

REACTIONS (4)
  - Ventricular septal defect [Recovering/Resolving]
  - Atrial septal defect [Not Recovered/Not Resolved]
  - Tethered oral tissue [Unknown]
  - Foetal exposure during pregnancy [Unknown]

NARRATIVE: CASE EVENT DATE: 20221201
